FAERS Safety Report 6393893-2 (Version None)
Quarter: 2009Q4

REPORT INFORMATION
  Report Type: 
  Country: None (occurrence: None)
  Receive Date: 20091008
  Receipt Date: 20090925
  Transmission Date: 20100525
  Serious: Yes (Hospitalization)
  Sender: FDA-Public Use
  Company Number: NL-PFIZER INC-2009270301

PATIENT
  Age: 72 Year

DRUGS (9)
  1. SOMATROPIN [Suspect]
     Indication: HYPOPITUITARISM
     Dosage: UNK
     Dates: end: 20061201
  2. ASCAL [Concomitant]
     Dosage: 100 MG, 1X/DAY
  3. HYDROCHLOROTHIAZIDE [Concomitant]
     Dosage: 25 MG, 1X/DAY
  4. ATACAND [Concomitant]
     Dosage: 8 MG, 1X/DAY
  5. SIMVASTATIN [Concomitant]
     Dosage: 40 MG, 1X/DAY
  6. OMEPRAZOLE [Concomitant]
     Dosage: 20 MG, 1X/DAY
  7. EUTHROID-1 [Concomitant]
     Dosage: 75 UG, 1X/DAY
  8. HYDROCORTISON [Concomitant]
     Dosage: 5 MG, UNK
  9. FEXOFENADINE [Concomitant]
     Dosage: 120 MG, AS NEEDED

REACTIONS (1)
  - CIRCULATORY COLLAPSE [None]
